FAERS Safety Report 17049021 (Version 1)
Quarter: 2019Q4

REPORT INFORMATION
  Report Type: Spontaneous
  Country: US (occurrence: US)
  Receive Date: 20191119
  Receipt Date: 20191119
  Transmission Date: 20200122
  Serious: No
  Sender: FDA-Public Use
  Company Number: US-SA-2019SA312530

PATIENT
  Age: 74 Year
  Sex: Male

DRUGS (1)
  1. PRALUENT [Suspect]
     Active Substance: ALIROCUMAB
     Indication: CARDIOMYOPATHY
     Dosage: 75 MG/ML, QOW
     Route: 058
     Dates: start: 20190729

REACTIONS (1)
  - Blood cholesterol decreased [Unknown]

NARRATIVE: CASE EVENT DATE: 2019
